FAERS Safety Report 6680849-5 (Version None)
Quarter: 2010Q2

REPORT INFORMATION
  Report Type: 
  Country: None (occurrence: None)
  Receive Date: 20100414
  Receipt Date: 20100401
  Transmission Date: 20101027
  Serious: Yes (Hospitalization, Other)
  Sender: FDA-Public Use
  Company Number: US-ELI_LILLY_AND_COMPANY-US201004000728

PATIENT
  Sex: Female
  Weight: 98.6 kg

DRUGS (22)
  1. ALIMTA [Suspect]
     Indication: LUNG CARCINOMA CELL TYPE UNSPECIFIED STAGE IV
     Dosage: 10 MG, UNK
     Dates: start: 20100202
  2. AREDIA [Concomitant]
  3. PLAVIX [Concomitant]
     Indication: STENT PLACEMENT
     Dosage: 75 MG, DAILY (1/D)
     Dates: start: 20060501
  4. ECOTRIN [Concomitant]
  5. FOLIC ACID [Concomitant]
  6. VITAMIN B COMPLEX CAP [Concomitant]
  7. MULTI-VITAMIN [Concomitant]
  8. COLECALCIFEROL [Concomitant]
  9. COMPAZINE [Concomitant]
  10. ANTIEMETICS AND ANTINAUSEANTS [Concomitant]
  11. SLOW-K [Concomitant]
  12. ZANTAC [Concomitant]
  13. THEO-DUR [Concomitant]
  14. COMBIVENT [Concomitant]
     Route: 055
  15. OXYGEN [Concomitant]
  16. SYNTHROID [Concomitant]
  17. GLUCOPHAGE [Concomitant]
  18. TEKTURNA /01763601/ [Concomitant]
  19. COZAAR [Concomitant]
  20. MAGNESIUM [Concomitant]
  21. BENADRYL [Concomitant]
  22. HYDROCHLOROTHIAZIDE [Concomitant]

REACTIONS (5)
  - COMPRESSION FRACTURE [None]
  - DEHYDRATION [None]
  - EPISTAXIS [None]
  - FALL [None]
  - HYPOTENSION [None]
